FAERS Safety Report 9994403 (Version 2)
Quarter: 2014Q2

REPORT INFORMATION
  Report Type: Spontaneous
  Country: US (occurrence: US)
  Receive Date: 20140311
  Receipt Date: 20140404
  Transmission Date: 20141212
  Serious: Yes (Other)
  Sender: FDA-Public Use
  Company Number: US-BIOGENIDEC-2014BI020425

PATIENT
  Age: 37 Year
  Sex: Female
  Weight: 45 kg

DRUGS (7)
  1. TYSABRI [Suspect]
     Indication: MULTIPLE SCLEROSIS
     Route: 042
     Dates: start: 20110705, end: 20131011
  2. TECFIDERA [Concomitant]
     Indication: MULTIPLE SCLEROSIS
     Dates: start: 20140110, end: 20140224
  3. PEPCID [Concomitant]
     Route: 048
  4. SERTRALINE [Concomitant]
     Indication: DEPRESSION
     Route: 048
     Dates: start: 20090420
  5. TRIMETHOPRIM [Concomitant]
     Indication: INFECTION PROPHYLAXIS
     Route: 048
     Dates: start: 20130812
  6. VITAMIN D [Concomitant]
     Route: 048
     Dates: start: 20100427
  7. ZOLPIDEM [Concomitant]
     Route: 048
     Dates: start: 20140226

REACTIONS (1)
  - Lymphoma [Not Recovered/Not Resolved]
